FAERS Safety Report 15880522 (Version 1)
Quarter: 2019Q1

REPORT INFORMATION
  Report Type: Spontaneous
  Country: CZ (occurrence: CZ)
  Receive Date: 20190128
  Receipt Date: 20190128
  Transmission Date: 20190417
  Serious: Yes (Other)
  Sender: FDA-Public Use
  Company Number: CZ-JNJFOC-20190132816

PATIENT
  Age: 80 Year
  Sex: Female
  Weight: 80 kg

DRUGS (13)
  1. VASOPIRIN [Concomitant]
     Route: 048
  2. BETOPTIC [Concomitant]
     Active Substance: BETAXOLOL HYDROCHLORIDE
     Route: 047
  3. XARELTO [Suspect]
     Active Substance: RIVAROXABAN
     Indication: THROMBOSIS PROPHYLAXIS
     Route: 048
     Dates: start: 20181126, end: 20181128
  4. EGILOK [Concomitant]
     Active Substance: METOPROLOL TARTRATE
     Route: 048
  5. METAMIZOLE SODIUM MONOHYDRATE [Concomitant]
     Active Substance: DIPYRONE
     Route: 048
  6. GRIMODIN [Concomitant]
     Route: 048
  7. HYPNOGEN [Concomitant]
     Active Substance: ZOLPIDEM\ZOLPIDEM TARTRATE
     Route: 048
  8. AMESOS [Concomitant]
     Route: 048
  9. ROSUVASTATIN. [Concomitant]
     Active Substance: ROSUVASTATIN
     Route: 048
  10. ZODAC [Concomitant]
     Active Substance: CETIRIZINE HYDROCHLORIDE
     Route: 048
  11. SIOFOR [Concomitant]
     Active Substance: METFORMIN HYDROCHLORIDE
     Route: 048
  12. XALACOM [Concomitant]
     Active Substance: LATANOPROST\TIMOLOL MALEATE
     Route: 047
  13. OPHTHALMO-FRAMYKOIN [Concomitant]
     Route: 047

REACTIONS (1)
  - Pemphigus [Recovered/Resolved]

NARRATIVE: CASE EVENT DATE: 20181126
